FAERS Safety Report 5595069-5 (Version None)
Quarter: 2008Q1

REPORT INFORMATION
  Report Type: 
  Country: None (occurrence: None)
  Receive Date: 20080117
  Receipt Date: 20080111
  Transmission Date: 20080703
  Serious: Yes (Life-Threatening)
  Sender: FDA-Public Use
  Company Number: US-ASTRAZENECA-2008UW00996

PATIENT
  Age: 49 Year
  Sex: Female

DRUGS (10)
  1. CRESTOR [Suspect]
     Indication: MICROANGIOPATHY
     Route: 048
     Dates: start: 20050901
  2. CRESTOR [Suspect]
     Route: 048
     Dates: end: 20070117
  3. CRESTOR [Suspect]
     Route: 048
     Dates: start: 20070101
  4. LIPITOR [Suspect]
     Dates: start: 20070101, end: 20070101
  5. ZETIA [Suspect]
     Dates: start: 20070101, end: 20070101
  6. ZETIA [Suspect]
     Dates: start: 20070101
  7. FISH OIL [Concomitant]
  8. ASPIRIN [Concomitant]
  9. PLAVIX [Concomitant]
  10. DIOVAN HCT [Concomitant]

REACTIONS (3)
  - MACROANGIOPATHY [None]
  - MICROANGIOPATHY [None]
  - NECK PAIN [None]
